FAERS Safety Report 6820461-8 (Version None)
Quarter: 2010Q3

REPORT INFORMATION
  Report Type: 
  Country: None (occurrence: None)
  Receive Date: 20100707
  Receipt Date: 20100623
  Transmission Date: 20110219
  Serious: Yes (Other)
  Sender: FDA-Public Use
  Company Number: US-MYLANLABS-2010S1011186

PATIENT
  Age: 43 Year
  Sex: Male
  Weight: 106 kg

DRUGS (1)
  1. MIRTAZAPINE [Suspect]
     Indication: MAJOR DEPRESSION
     Dosage: 15MG AT BEDTIME
     Route: 065

REACTIONS (1)
  - ACUTE PSYCHOSIS [None]
